FAERS Safety Report 11580819 (Version 2)
Quarter: 2016Q2

REPORT INFORMATION
  Report Type: Report from Study
  Country: CN (occurrence: CN)
  Receive Date: 20151001
  Receipt Date: 20160512
  Transmission Date: 20160815
  Serious: Yes (Other)
  Sender: FDA-Public Use
  Company Number: CN-ROCHE-1639850

PATIENT

DRUGS (2)
  1. ENDOSTATIN [Suspect]
     Active Substance: ENDOSTATIN
     Indication: PANCREATIC CARCINOMA
     Dosage: 3 ML CONCENTRATE TO 500 ML SALINE, DRIP TIME 3-4 HOURS?FOR 14 DAYS AND REPEAT EVERY 21 DAYS FOR 6 CY
     Route: 041
  2. CAPECITABINE. [Suspect]
     Active Substance: CAPECITABINE
     Indication: PANCREATIC CARCINOMA
     Route: 065

REACTIONS (1)
  - Haematotoxicity [Unknown]
